FAERS Safety Report 4606408-3 (Version None)
Quarter: 2005Q1

REPORT INFORMATION
  Report Type: 
  Country: None (occurrence: None)
  Receive Date: 20050311
  Receipt Date: 20050214
  Transmission Date: 20050727
  Serious: Yes (Death, Life-Threatening)
  Sender: FDA-Public Use
  Company Number: JP-MERCK-0502USA02344

PATIENT
  Age: 59 Year
  Sex: Male
  Weight: 68 kg

DRUGS (10)
  1. DECADRON [Suspect]
     Indication: MULTIPLE MYELOMA
     Route: 048
     Dates: start: 20050112, end: 20050115
  2. DECADRON [Suspect]
     Route: 048
     Dates: start: 20040903
  3. ONCOVIN [Suspect]
     Indication: MULTIPLE MYELOMA
     Route: 042
     Dates: start: 20050112, end: 20050115
  4. ONCOVIN [Suspect]
     Route: 042
     Dates: start: 20040903
  5. ADRIACIN [Suspect]
     Indication: MULTIPLE MYELOMA
     Route: 042
     Dates: start: 20050112, end: 20050115
  6. ADRIACIN [Suspect]
     Route: 042
     Dates: start: 20040903
  7. VASOTEC [Concomitant]
     Indication: HYPERTENSION
     Route: 048
     Dates: start: 20041122, end: 20050115
  8. BAKTAR [Concomitant]
     Indication: INFECTION PROPHYLAXIS
     Route: 048
     Dates: start: 20041122, end: 20050115
  9. PEPCID [Concomitant]
     Route: 048
     Dates: start: 20041122, end: 20050115
  10. LASIX [Concomitant]
     Indication: CARDIAC FAILURE
     Route: 048
     Dates: start: 20041122, end: 20050115

REACTIONS (4)
  - CARDIAC FAILURE ACUTE [None]
  - INTERSTITIAL LUNG DISEASE [None]
  - SEPSIS [None]
  - SEPTIC SHOCK [None]
